FAERS Safety Report 20572264 (Version 6)
Quarter: 2023Q1

REPORT INFORMATION
  Report Type: Report from Study
  Country: CA (occurrence: CA)
  Receive Date: 20220309
  Receipt Date: 20230217
  Transmission Date: 20230418
  Serious: Yes (Other)
  Sender: FDA-Public Use
  Company Number: CA-TAKEDA-2021TUS043114

PATIENT
  Age: 63 Year
  Sex: Male
  Weight: 76 kg

DRUGS (8)
  1. HUMAN IMMUNOGLOBULIN G [Suspect]
     Active Substance: HUMAN IMMUNOGLOBULIN G
     Indication: Secondary immunodeficiency
     Dosage: 8 GRAM, 1/WEEK
     Route: 065
     Dates: start: 20210706
  2. HUMAN IMMUNOGLOBULIN G [Suspect]
     Active Substance: HUMAN IMMUNOGLOBULIN G
     Dosage: 8 GRAM, 1/WEEK
     Route: 065
     Dates: start: 20210706
  3. HUMAN IMMUNOGLOBULIN G [Suspect]
     Active Substance: HUMAN IMMUNOGLOBULIN G
     Dosage: 8 GRAM, 1/WEEK
     Route: 050
     Dates: start: 20210706
  4. HUMAN IMMUNOGLOBULIN G [Suspect]
     Active Substance: HUMAN IMMUNOGLOBULIN G
     Dosage: 8 GRAM, 1/WEEK
     Route: 058
     Dates: start: 20210706
  5. IBRUTINIB [Suspect]
     Active Substance: IBRUTINIB
     Indication: Chronic lymphocytic leukaemia
     Dosage: 420 MILLIGRAM, QD
     Route: 048
     Dates: start: 20200127
  6. IBRUTINIB [Suspect]
     Active Substance: IBRUTINIB
     Dosage: 280 MILLIGRAM, QD
     Route: 048
     Dates: start: 20210820
  7. GABAPENTIN [Concomitant]
     Active Substance: GABAPENTIN
     Dosage: UNK
     Route: 065
  8. TAMSULOSIN [Concomitant]
     Active Substance: TAMSULOSIN
     Dosage: UNK UNK, 1/WEEK
     Route: 065

REACTIONS (41)
  - Hypersensitivity pneumonitis [Unknown]
  - Acute febrile neutrophilic dermatosis [Not Recovered/Not Resolved]
  - Pneumonia [Unknown]
  - Headache [Unknown]
  - Skin laceration [Unknown]
  - Skin mass [Unknown]
  - Infusion site bruising [Unknown]
  - Infusion site haemorrhage [Recovered/Resolved]
  - Burning sensation [Unknown]
  - Somnolence [Not Recovered/Not Resolved]
  - Insomnia [Unknown]
  - Abdominal pain [Recovered/Resolved]
  - Infusion site pain [Recovered/Resolved]
  - Infusion site erythema [Not Recovered/Not Resolved]
  - Infusion site pruritus [Not Recovered/Not Resolved]
  - Infusion site swelling [Recovering/Resolving]
  - Nausea [Not Recovered/Not Resolved]
  - Fatigue [Not Recovered/Not Resolved]
  - Dyshidrotic eczema [Unknown]
  - Viral rash [Unknown]
  - Skin lesion [Unknown]
  - Musculoskeletal pain [Unknown]
  - Blister [Recovered/Resolved]
  - Eye infection [Not Recovered/Not Resolved]
  - Rash erythematous [Recovering/Resolving]
  - Rash [Recovering/Resolving]
  - Infusion site scar [Not Recovered/Not Resolved]
  - Decreased appetite [Unknown]
  - Epistaxis [Unknown]
  - Dyspnoea [Unknown]
  - Oropharyngeal pain [Unknown]
  - Muscle twitching [Unknown]
  - Cough [Unknown]
  - Pyrexia [Unknown]
  - Vomiting [Unknown]
  - Dysphagia [Unknown]
  - Pharyngitis streptococcal [Unknown]
  - Muscular weakness [Unknown]
  - Incorrect drug administration rate [Unknown]
  - Device infusion issue [Unknown]
  - Product use complaint [Unknown]

NARRATIVE: CASE EVENT DATE: 20210101
